FAERS Safety Report 4456792-9 (Version None)
Quarter: 2004Q3

REPORT INFORMATION
  Report Type: 
  Country: None (occurrence: None)
  Receive Date: 20040921
  Receipt Date: 20040908
  Transmission Date: 20050211
  Serious: Yes (Hospitalization)
  Sender: FDA-Public Use
  Company Number: 2004061269

PATIENT
  Age: 34 Year
  Sex: Female

DRUGS (3)
  1. ZITHROMAX [Suspect]
     Indication: PELVIC INFLAMMATORY DISEASE
     Dosage: 500 MG, ONCE, INTRAMUSCULAR
     Route: 030
     Dates: start: 20040829
  2. CEFTRIAXONE [Concomitant]
  3. IBUPROFEN [Concomitant]

REACTIONS (9)
  - HYPOAESTHESIA [None]
  - INJECTION SITE ERYTHEMA [None]
  - INJECTION SITE INDURATION [None]
  - INJECTION SITE PAIN [None]
  - MEDICATION ERROR [None]
  - MONOPLEGIA [None]
  - OEDEMA PERIPHERAL [None]
  - POST PROCEDURAL NAUSEA [None]
  - POST PROCEDURAL VOMITING [None]
